FAERS Safety Report 6972970-9 (Version None)
Quarter: 2010Q3

REPORT INFORMATION
  Report Type: 
  Country: None (occurrence: None)
  Receive Date: 20100909
  Receipt Date: 20100712
  Transmission Date: 20110219
  Serious: No
  Sender: FDA-Public Use
  Company Number: US-KINGPHARMUSA00001-K201000913

PATIENT
  Age: 60 Year
  Sex: Female

DRUGS (4)
  1. EMBEDA [Suspect]
     Indication: PAIN
     Dosage: 30 MG, QD
     Route: 048
     Dates: start: 20100607, end: 20100711
  2. TRAMADOL HCL [Concomitant]
     Indication: PAIN
     Dosage: UNK
  3. ANTIHYPERTENSIVES [Concomitant]
     Indication: HYPERTENSION
     Dosage: UNK
  4. CHOLESTEROL- AND TRIGLYCERIDE REDUCERS [Concomitant]
     Indication: BLOOD CHOLESTEROL INCREASED
     Dosage: UNK

REACTIONS (1)
  - CONSTIPATION [None]
